FAERS Safety Report 8808402 (Version 1)
Quarter: 2012Q4

REPORT INFORMATION
  Report Type: Spontaneous
  Country: US (occurrence: None)
  Receive Date: 20120920
  Receipt Date: 20120920
  Transmission Date: 20130627
  Serious: No
  Sender: FDA-Public Use
  Company Number: None

PATIENT
  Age: 43 Year
  Sex: Male

DRUGS (1)
  1. SIMVASTATIN [Suspect]
     Indication: DYSLIPIDEMIA
     Dates: start: 200908, end: 201003

REACTIONS (3)
  - Hepatic steatosis [None]
  - Alanine aminotransferase increased [None]
  - Aspartate aminotransferase increased [None]
